FAERS Safety Report 10983573 (Version 2)
Quarter: 2015Q2

REPORT INFORMATION
  Report Type: Spontaneous
  Country: FR (occurrence: FR)
  Receive Date: 20150403
  Receipt Date: 20150409
  Transmission Date: 20150821
  Serious: Yes (Hospitalization)
  Sender: FDA-Public Use
  Company Number: FR-009507513-1504FRA001687

PATIENT
  Sex: Female

DRUGS (6)
  1. ETHINYL ESTRADIOL (+) LEVONORGESTREL [Suspect]
     Active Substance: ETHINYL ESTRADIOL\LEVONORGESTREL
     Indication: CONTRACEPTION
     Dosage: UNK
     Route: 048
     Dates: start: 201409, end: 20150303
  2. ALBUTEROL SULFATE. [Suspect]
     Active Substance: ALBUTEROL SULFATE
     Dosage: UNK
     Route: 055
     Dates: end: 20150303
  3. TRIAMCINOLONE ACETONIDE. [Suspect]
     Active Substance: TRIAMCINOLONE ACETONIDE
     Dosage: UNK, PRN
     Route: 045
     Dates: end: 20150303
  4. INTERFERON BETA-1A [Suspect]
     Active Substance: INTERFERON BETA-1A
     Dosage: 3 INJECTIONS, QW
     Route: 058
     Dates: start: 2008, end: 20150303
  5. DESLORATADINE. [Suspect]
     Active Substance: DESLORATADINE
     Dosage: UNK
     Route: 048
     Dates: end: 20150303
  6. FLURBIPROFEN. [Suspect]
     Active Substance: FLURBIPROFEN
     Indication: MIGRAINE
     Dosage: UNK
     Route: 048
     Dates: end: 20150303

REACTIONS (1)
  - Thrombotic microangiopathy [Recovering/Resolving]
